FAERS Safety Report 4902017-7 (Version None)
Quarter: 2006Q1

REPORT INFORMATION
  Report Type: 
  Country: None (occurrence: None)
  Receive Date: 20060202
  Receipt Date: 20060118
  Transmission Date: 20060701
  Serious: Yes (Hospitalization)
  Sender: FDA-Public Use
  Company Number: 2005S1011934

PATIENT
  Age: 58 Year
  Sex: Female

DRUGS (18)
  1. AMITRIPTYLINE HYDROCHLORIDE [Suspect]
     Indication: AGORAPHOBIA
     Dosage: SEE IMAGE
     Route: 048
     Dates: start: 19810101, end: 20051206
  2. AMITRIPTYLINE HYDROCHLORIDE [Suspect]
     Indication: DEPRESSION
     Dosage: SEE IMAGE
     Route: 048
     Dates: start: 19810101, end: 20051206
  3. AMITRIPTYLINE HYDROCHLORIDE [Suspect]
     Indication: PANIC DISORDER
     Dosage: SEE IMAGE
     Route: 048
     Dates: start: 19810101, end: 20051206
  4. AMITRIPTYLINE HYDROCHLORIDE [Suspect]
     Indication: AGORAPHOBIA
     Dosage: SEE IMAGE
     Route: 048
     Dates: start: 19810101, end: 20051206
  5. AMITRIPTYLINE HYDROCHLORIDE [Suspect]
     Indication: DEPRESSION
     Dosage: SEE IMAGE
     Route: 048
     Dates: start: 19810101, end: 20051206
  6. AMITRIPTYLINE HYDROCHLORIDE [Suspect]
     Indication: PANIC DISORDER
     Dosage: SEE IMAGE
     Route: 048
     Dates: start: 19810101, end: 20051206
  7. AMITRIPTYLINE HYDROCHLORIDE [Suspect]
     Indication: AGORAPHOBIA
     Dosage: SEE IMAGE
     Route: 048
     Dates: start: 20051214
  8. AMITRIPTYLINE HYDROCHLORIDE [Suspect]
     Indication: DEPRESSION
     Dosage: SEE IMAGE
     Route: 048
     Dates: start: 20051214
  9. AMITRIPTYLINE HYDROCHLORIDE [Suspect]
     Indication: PANIC DISORDER
     Dosage: SEE IMAGE
     Route: 048
     Dates: start: 20051214
  10. AMITRIPTYLINE HYDROCHLORIDE [Suspect]
     Indication: AGORAPHOBIA
     Dosage: SEE IMAGE
     Route: 048
     Dates: start: 20051214
  11. AMITRIPTYLINE HYDROCHLORIDE [Suspect]
     Indication: DEPRESSION
     Dosage: SEE IMAGE
     Route: 048
     Dates: start: 20051214
  12. AMITRIPTYLINE HYDROCHLORIDE [Suspect]
     Indication: PANIC DISORDER
     Dosage: SEE IMAGE
     Route: 048
     Dates: start: 20051214
  13. PAXIL CR [Suspect]
     Indication: AGORAPHOBIA
     Dosage: 50 MG; HS; ORAL
     Route: 048
     Dates: start: 19980101, end: 20051208
  14. PAXIL CR [Suspect]
     Indication: DEPRESSION
     Dosage: 50 MG; HS; ORAL
     Route: 048
     Dates: start: 19980101, end: 20051208
  15. PAXIL CR [Suspect]
     Indication: PANIC DISORDER
     Dosage: 50 MG; HS; ORAL
     Route: 048
     Dates: start: 19980101, end: 20051208
  16. PARACETAMOL/OXYCODONE HYDROCHLORIDE [Concomitant]
  17. CLONAZEPAM [Concomitant]
  18. ALPRAZOLAM [Concomitant]

REACTIONS (8)
  - ARRHYTHMIA [None]
  - CONFUSIONAL STATE [None]
  - CONVULSION [None]
  - DRUG INTERACTION [None]
  - DYSPHEMIA [None]
  - HALLUCINATION [None]
  - OVERDOSE [None]
  - SUICIDE ATTEMPT [None]
